FAERS Safety Report 6391405-0 (Version None)
Quarter: 2009Q4

REPORT INFORMATION
  Report Type: 
  Country: None (occurrence: None)
  Receive Date: 20091005
  Receipt Date: 20090921
  Transmission Date: 20100525
  Serious: Yes (Other)
  Sender: FDA-Public Use
  Company Number: MC200900338

PATIENT
  Sex: Male

DRUGS (2)
  1. CLEVIPREX [Suspect]
     Indication: BLOOD PRESSURE MANAGEMENT
     Dates: start: 20090801, end: 20090801
  2. CARDENE [Concomitant]

REACTIONS (2)
  - HYPOXIA [None]
  - RESPIRATORY GAS EXCHANGE DISORDER [None]
